FAERS Safety Report 19162718 (Version 2)
Quarter: 2021Q2

REPORT INFORMATION
  Report Type: Spontaneous
  Country: CA (occurrence: CA)
  Receive Date: 20210420
  Receipt Date: 20210602
  Transmission Date: 20210717
  Serious: Yes (Other)
  Sender: FDA-Public Use
  Company Number: CA-CELLTRION INC.-2020CA020939

PATIENT

DRUGS (11)
  1. INFLECTRA [Suspect]
     Active Substance: INFLIXIMAB-DYYB
     Dosage: 400 MG AT 0, 2 , 6 WEEKS, THEN EVERY 8 WEEKS (Q 2 WEEK DOSE)
     Route: 042
     Dates: start: 20200330
  2. INFLECTRA [Suspect]
     Active Substance: INFLIXIMAB-DYYB
     Indication: COLITIS ULCERATIVE
     Dosage: 400 MG AT 0, 2 , 6 WEEKS, THEN EVERY 8 WEEKS
     Route: 042
     Dates: start: 20200314
  3. INFLECTRA [Suspect]
     Active Substance: INFLIXIMAB-DYYB
     Dosage: 400 MG AT 0, 2 , 6 WEEKS, THEN EVERY 8 WEEKS
     Route: 042
     Dates: start: 20200627
  4. INFLECTRA [Suspect]
     Active Substance: INFLIXIMAB-DYYB
     Dosage: 400 MG AT 0, 2 , 6 WEEKS, THEN EVERY 8 WEEKS (Q 6 WEEK DOSE)
     Route: 042
     Dates: start: 20200425
  5. INFLECTRA [Suspect]
     Active Substance: INFLIXIMAB-DYYB
     Dosage: 400 MG AT 0, 2 , 6 WEEKS, THEN EVERY 8 WEEKS
     Route: 042
     Dates: start: 20201024
  6. INFLECTRA [Suspect]
     Active Substance: INFLIXIMAB-DYYB
     Dosage: 400 MG AT 0, 2 , 6 WEEKS, THEN EVERY 8 WEEKS
     Route: 042
     Dates: start: 20201024
  7. INFLECTRA [Suspect]
     Active Substance: INFLIXIMAB-DYYB
     Dosage: 400 MG AT 0, 2 , 6 WEEKS, THEN EVERY 8 WEEKS
     Route: 042
     Dates: start: 20210410
  8. INFLECTRA [Suspect]
     Active Substance: INFLIXIMAB-DYYB
     Dosage: 400 MG AT 0, 2 , 6 WEEKS, THEN EVERY 8 WEEKS
     Route: 042
     Dates: start: 20200314
  9. INFLECTRA [Suspect]
     Active Substance: INFLIXIMAB-DYYB
     Dosage: 400 MG AT 0, 2 , 6 WEEKS, THEN EVERY 8 WEEKS
     Route: 042
     Dates: start: 20201219
  10. METHOTREXATE. [Concomitant]
     Active Substance: METHOTREXATE
     Dosage: 25 MG, WEEKLY (STATUS UNKNOWN; ONGOING WHILE ON XELJANZ,NO MENTION DURING ENROLMENT FOR INFLECTRA)
     Route: 058
     Dates: start: 201811
  11. INFLECTRA [Suspect]
     Active Substance: INFLIXIMAB-DYYB
     Dosage: 400 MG AT 0, 2 , 6 WEEKS, THEN EVERY 8 WEEKS
     Route: 042
     Dates: start: 20210213

REACTIONS (4)
  - Fear of injection [Unknown]
  - Blood pressure fluctuation [Unknown]
  - Rheumatoid arthritis [Unknown]
  - Off label use [Unknown]

NARRATIVE: CASE EVENT DATE: 20200314
